FAERS Safety Report 8311789-3 (Version None)
Quarter: 2012Q1

REPORT INFORMATION
  Report Type: 
  Country: None (occurrence: None)
  Receive Date: 20120315
  Receipt Date: 20110614
  Transmission Date: 20120608
  Serious: Yes (Other)
  Sender: FDA-Public Use
  Company Number: PHHY2011US44356

PATIENT
  Age: 58 Year
  Sex: Female
  Weight: 60.8 kg

DRUGS (18)
  1. EYE DROPS (TETRYZOLINE HYDROCHLORIDE) [Concomitant]
  2. DILAUDID [Concomitant]
  3. MACRODANTIN [Concomitant]
  4. SIMVASTATIN [Concomitant]
  5. GILENYA [Suspect]
     Indication: RELAPSING-REMITTING MULTIPLE SCLEROSIS
     Dosage: 0.5 MG, QD, ORAL
     Route: 048
     Dates: start: 20110210, end: 20110513
  6. FIORICET [Concomitant]
  7. COUMADIN [Concomitant]
  8. MAGNESIUM SUPPLEMENTS (MAGNESIUM) [Concomitant]
  9. CLARINEX (LORATADINE, PSEUDOEPHEDRINE SULFATE) [Concomitant]
  10. VITAMIN B12 [Concomitant]
  11. TRAMADOL HCL [Concomitant]
  12. GABAPENTIN [Concomitant]
  13. LEXAPRO [Concomitant]
  14. BIOTIN (BIOTIN) [Concomitant]
  15. KLONOPIN [Concomitant]
  16. PREVACID [Concomitant]
  17. AMBIEN [Concomitant]
  18. TOPAMAX [Concomitant]

REACTIONS (6)
  - LEUKOPENIA [None]
  - SENSORY LOSS [None]
  - DEPRESSION [None]
  - GAIT DISTURBANCE [None]
  - MIGRAINE [None]
  - TREMOR [None]
